FAERS Safety Report 5721402-7 (Version None)
Quarter: 2008Q2

REPORT INFORMATION
  Report Type: 
  Country: None (occurrence: None)
  Receive Date: 20080429
  Receipt Date: 20080422
  Transmission Date: 20081010
  Serious: Yes (Hospitalization)
  Sender: FDA-Public Use
  Company Number: FR-JNJFOC-20080405478

PATIENT
  Sex: Male
  Weight: 72 kg

DRUGS (6)
  1. RISPERDAL CONSTA [Suspect]
     Indication: SCHIZOPHRENIA
     Route: 030
  2. RISPERDAL [Concomitant]
     Indication: SCHIZOPHRENIA
     Route: 048
  3. TERCIAN [Concomitant]
     Indication: PSYCHOTIC DISORDER
     Route: 048
  4. TERCIAN [Concomitant]
     Indication: SEDATION
     Route: 048
  5. OXAZEPAM [Concomitant]
     Indication: ANXIETY
     Route: 048
  6. DEPAMIDE [Concomitant]
     Indication: AFFECTIVE DISORDER
     Route: 048

REACTIONS (5)
  - ABNORMAL BEHAVIOUR [None]
  - CONDITION AGGRAVATED [None]
  - GENERAL PHYSICAL HEALTH DETERIORATION [None]
  - INAPPROPRIATE AFFECT [None]
  - SOLILOQUY [None]
